FAERS Safety Report 8916520 (Version 1)
Quarter: 2012Q4

REPORT INFORMATION
  Report Type: 
  Country: US (occurrence: US)
  Receive Date: 20121120
  Receipt Date: 20121120
  Transmission Date: 20130627
  Serious: No
  Sender: FDA-Public Use
  Company Number: US-009507513-1211USA004020

PATIENT
  Sex: Female
  Weight: 90.7 kg

DRUGS (1)
  1. IMPLANON [Suspect]
     Indication: CONTRACEPTION
     Dosage: 68mg per 3 year implant
     Route: 059
     Dates: start: 201206, end: 20121107

REACTIONS (2)
  - Metrorrhagia [Unknown]
  - Weight increased [Unknown]
